FAERS Safety Report 5065326-X (Version None)
Quarter: 2006Q3

REPORT INFORMATION
  Report Type: 
  Country: None (occurrence: None)
  Receive Date: 20060731
  Receipt Date: 20060724
  Transmission Date: 20061208
  Serious: Yes (Other)
  Sender: FDA-Public Use
  Company Number: CA-JNJFOC-20060704868

PATIENT
  Sex: Male
  Weight: 85 kg

DRUGS (5)
  1. TRAMACET [Suspect]
     Indication: BACK PAIN
     Route: 048
  2. ARTHROTEC [Concomitant]
  3. DOCUSATE [Concomitant]
     Indication: CONSTIPATION
  4. SENOKOT [Concomitant]
     Indication: CONSTIPATION
  5. ASCORBIC ACID [Concomitant]

REACTIONS (1)
  - DEAFNESS [None]
